FAERS Safety Report 8663018 (Version 2)
Quarter: 2013Q1

REPORT INFORMATION
  Report Type: Spontaneous
  Country: US (occurrence: US)
  Receive Date: 20120712
  Receipt Date: 20130125
  Transmission Date: 20140127
  Serious: Yes (Hospitalization)
  Sender: FDA-Public Use
  Company Number: US-BAYER-2012-069062

PATIENT
  Age: 37 Year
  Sex: Female
  Weight: 54.42 kg

DRUGS (19)
  1. YASMIN [Suspect]
     Dosage: UNK
     Dates: start: 2001, end: 2011
  2. YASMIN [Suspect]
     Dosage: UNK
  3. OCELLA [Suspect]
     Dosage: UNK
     Dates: start: 2001, end: 2011
  4. DEXILANT [Concomitant]
     Indication: GASTROOESOPHAGEAL REFLUX DISEASE
     Dosage: UNK
     Dates: start: 2007
  5. AMITRIPTYLINE [Concomitant]
     Indication: GASTROOESOPHAGEAL REFLUX DISEASE
     Dosage: UNK
     Dates: start: 2007
  6. GABAPENTIN [Concomitant]
     Indication: FIBROMYALGIA
     Dosage: UNK
     Dates: start: 2010
  7. GABAPENTIN [Concomitant]
     Indication: BACK PAIN
  8. KLONOPIN [Concomitant]
     Indication: NEURALGIA
     Dosage: UNK
     Dates: start: 2007
  9. BENTYL [Concomitant]
     Indication: IRRITABLE BOWEL SYNDROME
     Dosage: AS NEEDED
     Dates: start: 2007
  10. FLEXERIL [Concomitant]
     Indication: MYALGIA
     Dosage: AS NEEDED
  11. ZEGERID [Concomitant]
     Indication: GASTROOESOPHAGEAL REFLUX DISEASE
     Dosage: DAILY
  12. PROPOXYPHENE [Concomitant]
  13. ANUCORT-HC [Concomitant]
     Dosage: 25 MG, UNK
  14. DIFFERIN [Concomitant]
  15. LEVAQUIN [Concomitant]
     Dosage: 750 MG, UNK
  16. TEMAZEPAM [Concomitant]
     Dosage: 15 MG, UNK
  17. PROPOXYPHENE NAPSYLATE W/PARACETAMOL [Concomitant]
  18. DOXYCYCLINE HYCLATE [Concomitant]
  19. BEPOTASTINE BESILATE [Concomitant]
     Dosage: 1.5% SOLUTION

REACTIONS (14)
  - Gallbladder disorder [None]
  - Pancreatitis acute [None]
  - Gastrooesophageal reflux disease [None]
  - Mental disorder [None]
  - Abdominal pain [None]
  - Emotional distress [None]
  - Bile duct obstruction [None]
  - Irritable bowel syndrome [None]
  - Vomiting [None]
  - Diarrhoea [None]
  - Injury [None]
  - Depression [None]
  - Fear of death [None]
  - Nervousness [None]
